FAERS Safety Report 18152807 (Version 1)
Quarter: 2020Q3

REPORT INFORMATION
  Report Type: Spontaneous
  Country: US (occurrence: US)
  Receive Date: 20200814
  Receipt Date: 20200814
  Transmission Date: 20201103
  Serious: No
  Sender: FDA-Public Use
  Company Number: US-MANNKIND CORPORATION-2019MK000100

PATIENT
  Age: 63 Year
  Sex: Female
  Weight: 99.88 kg

DRUGS (4)
  1. AFREZZA [Suspect]
     Active Substance: INSULIN HUMAN
     Dates: start: 20190627, end: 20190627
  2. AFREZZA [Suspect]
     Active Substance: INSULIN HUMAN
     Dates: start: 20181228, end: 20190612
  3. AFREZZA [Suspect]
     Active Substance: INSULIN HUMAN
     Indication: PRODUCT USED FOR UNKNOWN INDICATION
     Dates: start: 20190612, end: 20190612
  4. AFREZZA [Suspect]
     Active Substance: INSULIN HUMAN
     Dates: start: 20190727

REACTIONS (9)
  - Chills [Recovered/Resolved]
  - Diarrhoea [Recovered/Resolved]
  - Fatigue [Recovered/Resolved]
  - Abdominal distension [Recovered/Resolved]
  - Dysgeusia [Recovered/Resolved]
  - Vomiting [Recovered/Resolved]
  - Feeling hot [Recovered/Resolved]
  - Dyspepsia [Recovered/Resolved]
  - Nausea [Recovered/Resolved]

NARRATIVE: CASE EVENT DATE: 20190612
